FAERS Safety Report 14639241 (Version 1)
Quarter: 2018Q1

REPORT INFORMATION
  Report Type: Spontaneous
  Country: AU (occurrence: AU)
  Receive Date: 20180315
  Receipt Date: 20180315
  Transmission Date: 20180509
  Serious: Yes (Other)
  Sender: FDA-Public Use
  Company Number: AU-ABBVIE-18K-008-2285264-00

PATIENT
  Sex: Female

DRUGS (1)
  1. HUMIRA [Suspect]
     Active Substance: ADALIMUMAB
     Indication: CROHN^S DISEASE
     Route: 058

REACTIONS (10)
  - Primary sequestrum [Recovering/Resolving]
  - Aphthous ulcer [Unknown]
  - Actinomycosis [Unknown]
  - Osteomyelitis [Unknown]
  - Tooth infection [Unknown]
  - Candida infection [Unknown]
  - Immunosuppression [Unknown]
  - Tooth abscess [Recovering/Resolving]
  - Osteonecrosis of jaw [Unknown]
  - Osteonecrosis [Unknown]
